FAERS Safety Report 15276745 (Version 1)
Quarter: 2018Q3

REPORT INFORMATION
  Report Type: Spontaneous
  Country: US (occurrence: US)
  Receive Date: 20180729
  Receipt Date: 20180729
  Transmission Date: 20181010
  Serious: Yes (Disabling)
  Sender: FDA-Public Use
  Company Number: None

PATIENT
  Age: 60 Year
  Sex: Female
  Weight: 92.25 kg

DRUGS (13)
  1. LYRICA [Concomitant]
     Active Substance: PREGABALIN
  2. TRULICITY [Suspect]
     Active Substance: DULAGLUTIDE
     Indication: DIABETES MELLITUS
     Dosage: ?          QUANTITY:1 INJECTION(S);?
     Route: 058
     Dates: start: 20171017, end: 20180430
  3. DULOXETINE. [Concomitant]
     Active Substance: DULOXETINE
  4. ATORVASTATIN [Concomitant]
     Active Substance: ATORVASTATIN
  5. VERAPAMIL [Concomitant]
     Active Substance: VERAPAMIL HYDROCHLORIDE
  6. KLORCON [Concomitant]
  7. NOVOLOG [Concomitant]
     Active Substance: INSULIN ASPART
  8. TRESIBA [Concomitant]
     Active Substance: INSULIN DEGLUDEC
  9. HCTZ [Concomitant]
     Active Substance: HYDROCHLOROTHIAZIDE
  10. AMBIEN [Concomitant]
     Active Substance: ZOLPIDEM TARTRATE
  11. CELECOXIB. [Concomitant]
     Active Substance: CELECOXIB
  12. MONTELUCAST [Concomitant]
     Active Substance: MONTELUKAST SODIUM
  13. LISINAPRIL [Concomitant]

REACTIONS (2)
  - Loss of employment [None]
  - Dyspnoea [None]

NARRATIVE: CASE EVENT DATE: 20180312
